FAERS Safety Report 6550423-X (Version None)
Quarter: 2010Q1

REPORT INFORMATION
  Report Type: 
  Country: None (occurrence: None)
  Receive Date: 20100125
  Receipt Date: 20100119
  Transmission Date: 20100710
  Serious: Yes (Other)
  Sender: FDA-Public Use
  Company Number: DE9087826JUN2002

PATIENT
  Sex: Male
  Weight: 11 kg

DRUGS (4)
  1. REFACTO [Suspect]
     Indication: FACTOR VIII DEFICIENCY
     Route: 042
     Dates: start: 20020602, end: 20020602
  2. REFACTO [Suspect]
     Route: 042
     Dates: start: 20020612, end: 20020612
  3. REFACTO [Suspect]
     Route: 042
     Dates: start: 20020613, end: 20020613
  4. REFACTO [Suspect]
     Route: 042
     Dates: start: 20020614

REACTIONS (1)
  - FREE HAEMOGLOBIN PRESENT [None]
